FAERS Safety Report 6831638-X (Version None)
Quarter: 2010Q3

REPORT INFORMATION
  Report Type: 
  Country: None (occurrence: None)
  Receive Date: 20100712
  Receipt Date: 20100708
  Transmission Date: 20110219
  Serious: Yes (Death, Other)
  Sender: FDA-Public Use
  Company Number: PHHY2010JP44897

PATIENT
  Sex: Female

DRUGS (5)
  1. CGS 20267 T30748+TAB [Suspect]
     Indication: BREAST CANCER
     Dosage: 2.5 MG/ DAY
     Route: 048
     Dates: start: 20080424, end: 20081130
  2. ZOMETA [Concomitant]
     Dosage: UNK
     Route: 041
     Dates: start: 20081022, end: 20081117
  3. EPIRUBICIN HYDROCHLORIDE [Concomitant]
     Dosage: 70 MG, UNK
     Route: 042
     Dates: start: 20080528, end: 20080929
  4. CYCLOPHOSPHAMIDE [Concomitant]
     Dosage: 5 MG, UNK
     Route: 048
     Dates: start: 20080528, end: 20080929
  5. TS 1 [Concomitant]
     Dosage: 80 MG
     Route: 048
     Dates: start: 20081027, end: 20081130

REACTIONS (2)
  - DEATH [None]
  - MALIGNANT NEOPLASM PROGRESSION [None]
